FAERS Safety Report 16084161 (Version 2)
Quarter: 2019Q2

REPORT INFORMATION
  Report Type: Spontaneous
  Country: US (occurrence: US)
  Receive Date: 20190318
  Receipt Date: 20190603
  Transmission Date: 20190711
  Serious: No
  Sender: FDA-Public Use
  Company Number: US-PFIZER INC-2019107396

PATIENT
  Age: 57 Year
  Sex: Female

DRUGS (3)
  1. XELJANZ XR [Suspect]
     Active Substance: TOFACITINIB CITRATE
     Indication: RHEUMATOID ARTHRITIS
     Dosage: 11 MG, 1X/DAY
     Dates: start: 201811
  2. RHEUMATE [Concomitant]
     Active Substance: LEVOMEFOLIC ACID\METHYLCOBALAMIN\TURMERIC
     Dosage: 2 DF, DAILY
  3. METHOTREXATE. [Concomitant]
     Active Substance: METHOTREXATE
     Dosage: 22.5 MG (9 PILLS), WEEKLY

REACTIONS (1)
  - Hypertension [Recovered/Resolved]
